FAERS Safety Report 4490232-9 (Version None)
Quarter: 2004Q4

REPORT INFORMATION
  Report Type: 
  Country: None (occurrence: None)
  Receive Date: 20041027
  Receipt Date: 20041015
  Transmission Date: 20050328
  Serious: Yes (Death, Hospitalization)
  Sender: FDA-Public Use
  Company Number: 2004232669ES

PATIENT
  Age: 80 Year
  Sex: Female
  Weight: 76 kg

DRUGS (5)
  1. DETRUSITOL(TOLTERODINE) CAPSULE, PROLONGED RELEASE [Suspect]
     Indication: URINARY INCONTINENCE
     Dosage: 4 MG, QD, ORAL
     Route: 048
     Dates: start: 20040712, end: 20040715
  2. CAPTOPRIL AND HYDROCHLOROTHIAZIDE [Concomitant]
  3. SUTRIL [Concomitant]
  4. HEMOVAS [Concomitant]
  5. ESBERIVEN (MELILOT) SOLUTION [Concomitant]

REACTIONS (13)
  - ABDOMINAL DISTENSION [None]
  - ABDOMINAL HERNIA [None]
  - ABDOMINAL PAIN [None]
  - CARDIO-RESPIRATORY ARREST [None]
  - CATHETER RELATED COMPLICATION [None]
  - CONDITION AGGRAVATED [None]
  - CONSTIPATION [None]
  - DIARRHOEA [None]
  - DYSPNOEA [None]
  - INTESTINAL DILATATION [None]
  - MESENTERIC OCCLUSION [None]
  - SEPSIS [None]
  - URINARY RETENTION [None]
